FAERS Safety Report 12802713 (Version 1)
Quarter: 2016Q4

REPORT INFORMATION
  Report Type: Spontaneous
  Country: US (occurrence: US)
  Receive Date: 20161001
  Receipt Date: 20161001
  Transmission Date: 20170207
  Serious: Yes (Life-Threatening, Hospitalization, Disabling, Other)
  Sender: FDA-Public Use
  Company Number: None

PATIENT
  Age: 31 Year
  Sex: Male
  Weight: 92.25 kg

DRUGS (1)
  1. 5-HTP SPRING VALLEY [Suspect]
     Active Substance: OXITRIPTAN
     Indication: ASTHENIA
     Dosage: ?          QUANTITY:2 TABLET(S);?
     Route: 048
     Dates: start: 20160910, end: 20160930

REACTIONS (4)
  - Anger [None]
  - Aggression [None]
  - Abnormal behaviour [None]
  - Blood pressure increased [None]

NARRATIVE: CASE EVENT DATE: 20160910
